FAERS Safety Report 9084846 (Version 1)
Quarter: 2013Q1

REPORT INFORMATION
  Report Type: Report from Study
  Country: US (occurrence: US)
  Receive Date: 20130131
  Receipt Date: 20130131
  Transmission Date: 20140127
  Serious: Yes (Other)
  Sender: FDA-Public Use
  Company Number: US-ABBOTT-12P-163-0989251-00

PATIENT
  Age: 48 Year
  Sex: Female

DRUGS (11)
  1. HUMIRA [Suspect]
     Indication: PSORIATIC ARTHROPATHY
     Route: 058
     Dates: start: 2011, end: 20120608
  2. HUMIRA [Suspect]
     Route: 058
     Dates: start: 20120720
  3. VICTOZA [Concomitant]
     Indication: DIABETES MELLITUS
  4. METFORMIN ER [Concomitant]
     Indication: DIABETES MELLITUS
  5. GLIPIZIDE ER [Concomitant]
     Indication: DIABETES MELLITUS
  6. METOPROLOL [Concomitant]
     Indication: HYPERTENSION
  7. FOLIC ACID [Concomitant]
     Indication: PRODUCT USED FOR UNKNOWN INDICATION
  8. CYMBALTA [Concomitant]
     Indication: PRODUCT USED FOR UNKNOWN INDICATION
  9. KLONOPIN [Concomitant]
     Indication: PRODUCT USED FOR UNKNOWN INDICATION
  10. UNKNOWN SLEEP MEDICATION (NON-ABBOTT) [Concomitant]
     Indication: SLEEP DISORDER
  11. HYDROXYZINE [Concomitant]
     Indication: PRODUCT USED FOR UNKNOWN INDICATION

REACTIONS (2)
  - Hysterectomy [Recovered/Resolved]
  - Injection site pain [Recovered/Resolved]
